FAERS Safety Report 8162472-9 (Version None)
Quarter: 2012Q1

REPORT INFORMATION
  Report Type: 
  Country: None (occurrence: None)
  Receive Date: 20120224
  Receipt Date: 20120224
  Transmission Date: 20120608
  Serious: Yes (Other)
  Sender: FDA-Public Use
  Company Number: None

PATIENT
  Age: 56 Year
  Sex: Female
  Weight: 65.77 kg

DRUGS (1)
  1. CYMBALTA [Suspect]
     Indication: DEPRESSION
     Dates: start: 20070806, end: 20120206

REACTIONS (5)
  - DYSPEPSIA [None]
  - NAUSEA [None]
  - IMPAIRED GASTRIC EMPTYING [None]
  - QUALITY OF LIFE DECREASED [None]
  - REGURGITATION [None]
